FAERS Safety Report 13246730 (Version 2)
Quarter: 2017Q1

REPORT INFORMATION
  Report Type: Spontaneous
  Country: US (occurrence: US)
  Receive Date: 20170217
  Receipt Date: 20170227
  Transmission Date: 20170428
  Serious: No
  Sender: FDA-Public Use
  Company Number: US-PFIZER INC-2784347

PATIENT
  Sex: Female

DRUGS (1)
  1. DEXTROSE. [Suspect]
     Active Substance: DEXTROSE
     Dosage: NOT REPORTED
     Dates: start: 20150303

REACTIONS (3)
  - Accident at work [Unknown]
  - Laceration [Unknown]
  - Syringe issue [Unknown]

NARRATIVE: CASE EVENT DATE: 20150304
